FAERS Safety Report 12622453 (Version 5)
Quarter: 2017Q3

REPORT INFORMATION
  Report Type: Report from Study
  Country: JP (occurrence: JP)
  Receive Date: 20160804
  Receipt Date: 20170920
  Transmission Date: 20171127
  Serious: Yes (Death, Hospitalization, Other)
  Sender: FDA-Public Use
  Company Number: PHJP2016JP020122

PATIENT
  Age: 59 Year
  Sex: Female

DRUGS (1)
  1. ZYKADIA [Suspect]
     Active Substance: CERITINIB
     Indication: NON-SMALL CELL LUNG CANCER STAGE IV
     Dosage: 750 MG, QD
     Route: 048
     Dates: start: 20160622, end: 20160718

REACTIONS (7)
  - Non-small cell lung cancer stage IV [Not Recovered/Not Resolved]
  - Incorrect route of drug administration [Unknown]
  - C-reactive protein increased [Fatal]
  - Pyrexia [Fatal]
  - Malignant neoplasm progression [Not Recovered/Not Resolved]
  - Sepsis [Fatal]
  - Haemodynamic instability [Fatal]

NARRATIVE: CASE EVENT DATE: 20160718
